FAERS Safety Report 4846580-3 (Version None)
Quarter: 2005Q4

REPORT INFORMATION
  Report Type: 
  Country: None (occurrence: None)
  Receive Date: 20051202
  Receipt Date: 20051117
  Transmission Date: 20060501
  Serious: Yes (Death, Other)
  Sender: FDA-Public Use
  Company Number: 12615

PATIENT
  Age: 36 Year
  Sex: Female

DRUGS (14)
  1. METHOTREXATE [Suspect]
     Indication: BONE SARCOMA
     Dosage: 24 G OTH UNK
  2. LEUCOVORIN CALCIUM [Concomitant]
  3. ONDANSETRON [Concomitant]
  4. LORAZEPAM [Concomitant]
  5. DEXAMETHASONE [Concomitant]
  6. ENOXAPARIN [Concomitant]
  7. PANTOPRAZOLE [Concomitant]
  8. SERTRALINE HCL [Concomitant]
  9. ZOLPIDEM TARTRATE [Concomitant]
  10. ALPRAZOLAM [Concomitant]
  11. WARFARIN SODIUM [Concomitant]
  12. LORATADINE-PSEUDOEPHEDRINE [Concomitant]
  13. ACYCLOVIR [Concomitant]
  14. LEVOFLOXACIN [Concomitant]

REACTIONS (8)
  - CHEST DISCOMFORT [None]
  - CHEST PAIN [None]
  - HEART RATE IRREGULAR [None]
  - LIVER FUNCTION TEST ABNORMAL [None]
  - NODAL RHYTHM [None]
  - SINUS ARREST [None]
  - SINUS BRADYCARDIA [None]
  - VENTRICULAR TACHYCARDIA [None]
